FAERS Safety Report 7262226-1 (Version None)
Quarter: 2011Q1

REPORT INFORMATION
  Report Type: 
  Country: None (occurrence: None)
  Receive Date: 20110130
  Receipt Date: 20101212
  Transmission Date: 20110831
  Serious: No
  Sender: FDA-Public Use
  Company Number: US-ABBOTT-10P-163-0685484-00

PATIENT
  Age: 78 Year
  Sex: Female

DRUGS (9)
  1. COENZYME Q10 [Concomitant]
     Indication: PRODUCT USED FOR UNKNOWN INDICATION
  2. FOSAMAX [Concomitant]
     Indication: BONE DISORDER
  3. CENTRUM [Concomitant]
     Indication: VITAMIN SUPPLEMENTATION
  4. HUMIRA [Suspect]
     Indication: PSORIASIS
     Dates: start: 20100813
  5. ESTER-C [Concomitant]
     Indication: PRODUCT USED FOR UNKNOWN INDICATION
  6. LISINOPRIL [Concomitant]
     Indication: BLOOD PRESSURE
  7. LIPITOR [Concomitant]
     Indication: BLOOD CHOLESTEROL
  8. D3 [Concomitant]
     Indication: PRODUCT USED FOR UNKNOWN INDICATION
  9. VITAMIN B-12 [Concomitant]
     Indication: PRODUCT USED FOR UNKNOWN INDICATION

REACTIONS (6)
  - PARAESTHESIA [None]
  - DRUG INEFFECTIVE [None]
  - PSORIASIS [None]
  - EPISTAXIS [None]
  - WEIGHT INCREASED [None]
  - DRUG DOSE OMISSION [None]
